FAERS Safety Report 10727312 (Version 2)
Quarter: 2015Q1

REPORT INFORMATION
  Report Type: Spontaneous
  Country: ID (occurrence: ID)
  Receive Date: 20150121
  Receipt Date: 20150209
  Transmission Date: 20150721
  Serious: Yes (Hospitalization)
  Sender: FDA-Public Use
  Company Number: ID-JNJFOC-20141218723

PATIENT
  Age: 58 Year
  Sex: Female

DRUGS (2)
  1. INVEGA SUSTENNA [Suspect]
     Active Substance: PALIPERIDONE PALMITATE
     Indication: SCHIZOPHRENIA
     Route: 030
     Dates: start: 20141201
  2. INVEGA SUSTENNA [Suspect]
     Active Substance: PALIPERIDONE PALMITATE
     Indication: SCHIZOPHRENIA
     Route: 030
     Dates: start: 20141211

REACTIONS (9)
  - Cognitive disorder [Unknown]
  - Extrapyramidal disorder [Recovered/Resolved]
  - Hallucination [Recovering/Resolving]
  - Enuresis [Recovered/Resolved with Sequelae]
  - Weight decreased [Recovered/Resolved]
  - Dysphagia [Recovered/Resolved]
  - Somnolence [Recovered/Resolved with Sequelae]
  - Apathy [Recovered/Resolved with Sequelae]
  - Fatigue [Recovered/Resolved with Sequelae]
